FAERS Safety Report 12633217 (Version 2)
Quarter: 2016Q3

REPORT INFORMATION
  Report Type: Spontaneous
  Country: US (occurrence: US)
  Receive Date: 20160808
  Receipt Date: 20160808
  Transmission Date: 20161109
  Serious: No
  Sender: FDA-Public Use
  Company Number: US-BEH-2016059555

PATIENT
  Sex: Female
  Weight: 84 kg

DRUGS (36)
  1. EPIPEN [Concomitant]
     Active Substance: EPINEPHRINE
  2. NORTRIPTYLINE [Concomitant]
     Active Substance: NORTRIPTYLINE
  3. HYOSCYAMINE. [Concomitant]
     Active Substance: HYOSCYAMINE
  4. ADVAIR HFA [Concomitant]
     Active Substance: FLUTICASONE PROPIONATE\SALMETEROL XINAFOATE
  5. HIZENTRA [Suspect]
     Active Substance: HUMAN IMMUNOGLOBULIN G
     Indication: IMMUNODEFICIENCY COMMON VARIABLE
     Route: 058
  6. ZYRTEC [Concomitant]
     Active Substance: CETIRIZINE HYDROCHLORIDE
  7. TRAMADOL. [Concomitant]
     Active Substance: TRAMADOL
  8. POLYETHYLENE [Concomitant]
     Active Substance: HIGH DENSITY POLYETHYLENE
  9. RANITIDINE. [Concomitant]
     Active Substance: RANITIDINE
  10. ACETAMINOPHEN. [Concomitant]
     Active Substance: ACETAMINOPHEN
  11. GUAIFENESIN. [Concomitant]
     Active Substance: GUAIFENESIN
  12. LEVOFLOXACIN. [Concomitant]
     Active Substance: LEVOFLOXACIN
  13. CYMBALTA [Concomitant]
     Active Substance: DULOXETINE HYDROCHLORIDE
  14. LASIX [Concomitant]
     Active Substance: FUROSEMIDE
  15. GABAPENTIN. [Concomitant]
     Active Substance: GABAPENTIN
  16. KLONOPIN [Concomitant]
     Active Substance: CLONAZEPAM
  17. HIZENTRA [Suspect]
     Active Substance: HUMAN IMMUNOGLOBULIN G
     Route: 058
     Dates: start: 20141002
  18. DIPHENHYDRAMINE. [Concomitant]
     Active Substance: DIPHENHYDRAMINE
  19. ZOFRAN [Concomitant]
     Active Substance: ONDANSETRON HYDROCHLORIDE
  20. SPIRIVA [Concomitant]
     Active Substance: TIOTROPIUM BROMIDE MONOHYDRATE
  21. POTASSIUM [Concomitant]
     Active Substance: POTASSIUM
  22. TRAZODONE [Concomitant]
     Active Substance: TRAZODONE HYDROCHLORIDE
  23. CLARITIN [Concomitant]
     Active Substance: LORATADINE
  24. ONDANSETRON [Concomitant]
     Active Substance: ONDANSETRON
  25. LEVAQUIN [Concomitant]
     Active Substance: LEVOFLOXACIN
  26. NASONEX [Concomitant]
     Active Substance: MOMETASONE FUROATE
  27. BUSPIRONE [Concomitant]
     Active Substance: BUSPIRONE HYDROCHLORIDE
  28. HIZENTRA [Suspect]
     Active Substance: HUMAN IMMUNOGLOBULIN G
     Route: 058
  29. HIZENTRA [Suspect]
     Active Substance: HUMAN IMMUNOGLOBULIN G
     Route: 058
  30. LIDOCAINE. [Concomitant]
     Active Substance: LIDOCAINE
  31. VITAMIN D [Concomitant]
     Active Substance: CHOLECALCIFEROL
  32. FLAGYL [Concomitant]
     Active Substance: METRONIDAZOLE\METRONIDAZOLE HYDROCHLORIDE
  33. PREDNISONE. [Concomitant]
     Active Substance: PREDNISONE
  34. IRON [Concomitant]
     Active Substance: IRON
  35. SINGULAIR [Concomitant]
     Active Substance: MONTELUKAST SODIUM
  36. ALBUTEROL. [Concomitant]
     Active Substance: ALBUTEROL

REACTIONS (5)
  - Bronchitis [Unknown]
  - Asthma [Unknown]
  - Animal bite [Unknown]
  - Infection [Unknown]
  - Sinusitis [Unknown]
